FAERS Safety Report 6760379-2 (Version None)
Quarter: 2010Q2

REPORT INFORMATION
  Report Type: 
  Country: None (occurrence: None)
  Receive Date: 20100608
  Receipt Date: 20100602
  Transmission Date: 20101027
  Serious: Yes (Other)
  Sender: FDA-Public Use
  Company Number: ES-ASTRAZENECA-2010SE25826

PATIENT
  Age: 80 Year
  Sex: Male

DRUGS (6)
  1. CASODEX [Suspect]
     Indication: PROSTATE CANCER
     Route: 048
     Dates: start: 20100309, end: 20100413
  2. ZOLADEX [Concomitant]
     Indication: PROSTATE CANCER
     Route: 058
     Dates: start: 20091109
  3. ENALAPRIL [Concomitant]
     Indication: HYPERTENSION
     Route: 048
     Dates: start: 20090702
  4. ALMAX FORTE [Concomitant]
     Dosage: AS REQUIRED
     Route: 048
     Dates: start: 20090702
  5. COLIRCUSI HUMECTANTE [Concomitant]
     Indication: CORNEAL TRANSPLANT
     Route: 047
     Dates: start: 20090702
  6. SPIRIVA [Concomitant]
     Indication: CHRONIC OBSTRUCTIVE PULMONARY DISEASE
     Route: 055
     Dates: start: 20091109

REACTIONS (2)
  - ANGIOEDEMA [None]
  - PRURITUS [None]
